FAERS Safety Report 17604370 (Version 1)
Quarter: 2020Q1

REPORT INFORMATION
  Report Type: Spontaneous
  Country: US (occurrence: US)
  Receive Date: 20200331
  Receipt Date: 20200331
  Transmission Date: 20200409
  Serious: No
  Sender: FDA-Public Use
  Company Number: US-PFIZER INC-2020126713

PATIENT
  Age: 73 Year
  Sex: Female
  Weight: 67 kg

DRUGS (3)
  1. ZYRTEC [Suspect]
     Active Substance: CETIRIZINE HYDROCHLORIDE
     Indication: URTICARIA
     Dosage: UNK, DAILY
  2. MEDROL [Suspect]
     Active Substance: METHYLPREDNISOLONE
     Indication: URTICARIA
     Dosage: UNK (4 MG TABLETS AND THE PATIENT HAS 2 TABLETS TO TAKE TODAY AND 1 TABLET TOMORROW)
  3. SARNA (PRAMOXINE HYDROCHLORIDE) [Suspect]
     Active Substance: PRAMOXINE HYDROCHLORIDE
     Indication: URTICARIA
     Dosage: UNK
     Route: 061

REACTIONS (1)
  - Drug ineffective [Unknown]
